FAERS Safety Report 6650363-1 (Version None)
Quarter: 2010Q1

REPORT INFORMATION
  Report Type: 
  Country: None (occurrence: None)
  Receive Date: 20100325
  Receipt Date: 20100316
  Transmission Date: 20100710
  Serious: Yes (Other)
  Sender: FDA-Public Use
  Company Number: US-SANOFI-AVENTIS-2010SA016387

PATIENT
  Age: 65 Year
  Sex: Male

DRUGS (16)
  1. PLAVIX [Suspect]
     Indication: STENT PLACEMENT
     Route: 048
     Dates: start: 20010601
  2. PLAVIX [Suspect]
     Indication: METHYLENETETRAHYDROFOLATE REDUCTASE POLYMORPHISM
     Route: 048
     Dates: start: 20010601
  3. PLAVIX [Suspect]
     Indication: GENE MUTATION
     Route: 048
     Dates: start: 20010601
  4. ASPIRIN [Suspect]
     Route: 065
     Dates: end: 20080101
  5. ASPIRIN [Suspect]
     Route: 065
     Dates: start: 20080101
  6. LIPITOR [Concomitant]
  7. NIACIN [Concomitant]
  8. AZOR [Concomitant]
     Dosage: 10/40 DAILY
  9. WELCHOL [Concomitant]
  10. CYMBALTA [Concomitant]
     Indication: DEPRESSION
  11. ZYPREXA [Concomitant]
     Indication: INSOMNIA
  12. ANDROGEL [Concomitant]
  13. FOLIC ACID [Concomitant]
  14. VITAMIN D [Concomitant]
     Dosage: 50,000 EVERY WEEK
  15. CALTRATE [Concomitant]
  16. LIPOFLAVONOID [Concomitant]
     Dosage: 2 TABLETS DAILY

REACTIONS (5)
  - CEREBRAL HAEMORRHAGE [None]
  - FALL [None]
  - OFF LABEL USE [None]
  - PULMONARY EMBOLISM [None]
  - TRANSIENT ISCHAEMIC ATTACK [None]
